FAERS Safety Report 4411875-4 (Version None)
Quarter: 2004Q3

REPORT INFORMATION
  Report Type: 
  Country: None (occurrence: None)
  Receive Date: 20040730
  Receipt Date: 20030707
  Transmission Date: 20050211
  Serious: No
  Sender: FDA-Public Use
  Company Number: US-GLAXOSMITHKLINE-A0415589A

PATIENT
  Age: 36 Year
  Sex: Male

DRUGS (1)
  1. RANITIDINE [Suspect]
     Indication: ILL-DEFINED DISORDER
     Dosage: 150MG UNKNOWN
     Route: 048

REACTIONS (5)
  - CHEST DISCOMFORT [None]
  - ENDOCRINE DISORDER [None]
  - GYNAECOMASTIA [None]
  - HAEMATOCHEZIA [None]
  - HYPOAESTHESIA [None]
